FAERS Safety Report 4455435-8 (Version None)
Quarter: 2004Q3

REPORT INFORMATION
  Report Type: 
  Country: None (occurrence: None)
  Receive Date: 20040922
  Receipt Date: 20040914
  Transmission Date: 20050211
  Serious: Yes (Other)
  Sender: FDA-Public Use
  Company Number: US-JNJFOC-20040406016

PATIENT
  Sex: Female
  Weight: 50.8 kg

DRUGS (2)
  1. REMICADE [Suspect]
     Route: 042
  2. REMICADE [Suspect]
     Indication: CROHN'S DISEASE
     Route: 042

REACTIONS (3)
  - DYSPHAGIA [None]
  - PHARYNGITIS [None]
  - SQUAMOUS CELL CARCINOMA [None]
